FAERS Safety Report 9656645 (Version 8)
Quarter: 2015Q1

REPORT INFORMATION
  Report Type: Spontaneous
  Country: US (occurrence: US)
  Receive Date: 20131030
  Receipt Date: 20150223
  Transmission Date: 20150721
  Serious: Yes (Hospitalization, Disabling, Other)
  Sender: FDA-Public Use
  Company Number: US-009507513-1310USA010698

PATIENT
  Sex: Female
  Weight: 66.21 kg

DRUGS (3)
  1. FOSAMAX [Suspect]
     Active Substance: ALENDRONATE SODIUM
     Indication: OSTEOPOROSIS
     Dosage: 10 MG, QD
     Route: 048
     Dates: start: 19970828, end: 20010124
  2. FOSAMAX [Suspect]
     Active Substance: ALENDRONATE SODIUM
     Indication: OSTEOPENIA
     Dosage: 70 MG, QW
     Route: 048
     Dates: start: 20010224
  3. FOSAMAX [Suspect]
     Active Substance: ALENDRONATE SODIUM
     Dosage: UNK
     Route: 048
     Dates: start: 1997, end: 2007

REACTIONS (100)
  - Internal fixation of fracture [Unknown]
  - Rib fracture [Unknown]
  - Road traffic accident [Unknown]
  - Intervertebral disc degeneration [Unknown]
  - Impaired healing [Unknown]
  - Blood pressure decreased [Unknown]
  - Rib fracture [Unknown]
  - Femur fracture [Unknown]
  - Impaired healing [Unknown]
  - Anxiety [Not Recovered/Not Resolved]
  - Cardiac failure congestive [Unknown]
  - Transient ischaemic attack [Unknown]
  - Coronary arterial stent insertion [Unknown]
  - Spinal compression fracture [Unknown]
  - Tooth disorder [Unknown]
  - Stress [Unknown]
  - Coronary arterial stent insertion [Unknown]
  - Tooth fracture [Unknown]
  - Medical device removal [Unknown]
  - Clavicle fracture [Unknown]
  - Tooth fracture [Unknown]
  - Dental caries [Unknown]
  - Hot flush [Unknown]
  - Back injury [Not Recovered/Not Resolved]
  - Femur fracture [Unknown]
  - Hip fracture [Unknown]
  - Removal of internal fixation [Unknown]
  - Spinal fusion surgery [Unknown]
  - Intervertebral disc operation [Unknown]
  - Fracture nonunion [Unknown]
  - Spinal fracture [Unknown]
  - Bronchitis [Unknown]
  - Hypokalaemia [Unknown]
  - Arthritis [Unknown]
  - Stress [Unknown]
  - Regurgitation [Unknown]
  - Medical device complication [Unknown]
  - Insomnia [Unknown]
  - Arthralgia [Not Recovered/Not Resolved]
  - Dyspepsia [Unknown]
  - Femur fracture [Unknown]
  - Hip fracture [Unknown]
  - Removal of internal fixation [Unknown]
  - Cerebrovascular accident [Unknown]
  - Pubis fracture [Unknown]
  - Scoliosis [Unknown]
  - Road traffic accident [Unknown]
  - Lacunar infarction [Unknown]
  - Anxiety [Unknown]
  - Herpes zoster [Unknown]
  - Femur fracture [Unknown]
  - Fracture nonunion [Unknown]
  - Spinal rod insertion [Unknown]
  - Myocardial infarction [Unknown]
  - Fractured sacrum [Unknown]
  - Stress [Unknown]
  - Haemorrhagic anaemia [Recovering/Resolving]
  - Facet joint syndrome [Unknown]
  - Hypertonic bladder [Unknown]
  - Osteoporotic fracture [Unknown]
  - Pelvic fracture [Unknown]
  - Clavicle fracture [Unknown]
  - Hypercholesterolaemia [Unknown]
  - Back pain [Not Recovered/Not Resolved]
  - Joint injury [Unknown]
  - Internal fixation of fracture [Unknown]
  - Bone graft [Unknown]
  - Intramedullary rod insertion [Unknown]
  - Pain in extremity [Not Recovered/Not Resolved]
  - Hypertension [Unknown]
  - Pelvic fracture [Unknown]
  - Escherichia urinary tract infection [Unknown]
  - Kyphosis [Unknown]
  - Gastrointestinal disorder [Recovered/Resolved]
  - Radicular pain [Not Recovered/Not Resolved]
  - Clavicle fracture [Unknown]
  - Impaired healing [Unknown]
  - Adverse event [Unknown]
  - Drug ineffective [Unknown]
  - Femur fracture [Unknown]
  - Femur fracture [Unknown]
  - Spinal fusion surgery [Unknown]
  - Spinal nerve stimulator implantation [Unknown]
  - Depression [Not Recovered/Not Resolved]
  - Rheumatoid arthritis [Unknown]
  - Coronary angioplasty [Unknown]
  - Coronary artery disease [Unknown]
  - Foot fracture [Unknown]
  - Spinal fracture [Unknown]
  - Rib fracture [Unknown]
  - Hand fracture [Unknown]
  - Rib fracture [Unknown]
  - Gastrooesophageal reflux disease [Unknown]
  - Intramedullary rod insertion [Unknown]
  - Foot fracture [Not Recovered/Not Resolved]
  - Intervertebral disc operation [Unknown]
  - Rib fracture [Unknown]
  - Coronary artery bypass [Unknown]
  - Skin fragility [Unknown]
  - Rib fracture [Unknown]

NARRATIVE: CASE EVENT DATE: 19980610
